FAERS Safety Report 9269963 (Version 1)
Quarter: 2013Q2

REPORT INFORMATION
  Report Type: Spontaneous
  Country: US (occurrence: US)
  Receive Date: 20130503
  Receipt Date: 20130503
  Transmission Date: 20140414
  Serious: No
  Sender: FDA-Public Use
  Company Number: US-PFIZER INC-2013135124

PATIENT
  Age: 59 Year
  Sex: Male
  Weight: 84.35 kg

DRUGS (1)
  1. VIAGRA [Suspect]
     Indication: PROSTATE CANCER
     Dosage: 100 MG, AS NEEDED
     Route: 048

REACTIONS (2)
  - Therapeutic response unexpected [Unknown]
  - Off label use [Unknown]
